FAERS Safety Report 6100624-X (Version None)
Quarter: 2009Q1

REPORT INFORMATION
  Report Type: 
  Country: None (occurrence: None)
  Receive Date: 20090223
  Receipt Date: 20090211
  Transmission Date: 20090719
  Serious: Yes (Other)
  Sender: FDA-Public Use
  Company Number: CHPA2009US04269

PATIENT
  Age: 55 Year
  Sex: Male

DRUGS (2)
  1. GAS-X EXTRA STRENGTH SOFTGELS (NCH0 9SIMETHICONE) SOFT GELATIN CAPSULE [Suspect]
     Indication: FLATULENCE
     Dosage: 125 MG, QHS, ORAL
     Route: 048
     Dates: start: 20090210, end: 20090211
  2. GLIPIZIDE [Concomitant]

REACTIONS (3)
  - BLOOD GLUCOSE INCREASED [None]
  - FEELING COLD [None]
  - PARAESTHESIA [None]
